FAERS Safety Report 17724531 (Version 1)
Quarter: 2020Q2

REPORT INFORMATION
  Report Type: Report from Study
  Country: GB (occurrence: GB)
  Receive Date: 20200429
  Receipt Date: 20200429
  Transmission Date: 20200714
  Serious: Yes (Other)
  Sender: FDA-Public Use
  Company Number: GB-SAMSUNG BIOEPIS-SB-2020-12068

PATIENT
  Age: 41 Year
  Sex: Female

DRUGS (1)
  1. IMRALDI [Suspect]
     Active Substance: ADALIMUMAB
     Indication: CROHN^S DISEASE
     Route: 058

REACTIONS (6)
  - Influenza [Recovered/Resolved]
  - Immunosuppression [Unknown]
  - Crohn^s disease [Recovered/Resolved]
  - Nasopharyngitis [Unknown]
  - Pharyngitis [Unknown]
  - Sinusitis [Recovered/Resolved]
